FAERS Safety Report 13969568 (Version 5)
Quarter: 2017Q4

REPORT INFORMATION
  Report Type: Spontaneous
  Country: US (occurrence: US)
  Receive Date: 20170914
  Receipt Date: 20171208
  Transmission Date: 20180321
  Serious: Yes (Hospitalization, Other)
  Sender: FDA-Public Use
  Company Number: US-TEVA-805188USA

PATIENT
  Age: 65 Year
  Sex: Female
  Weight: 99 kg

DRUGS (1)
  1. SYNRIBO [Suspect]
     Active Substance: OMACETAXINE MEPESUCCINATE
     Indication: CHRONIC MYELOID LEUKAEMIA
     Dosage: 2.5MG (0.71ML) FOR SEVEN DAYS
     Route: 065
     Dates: start: 20170626

REACTIONS (8)
  - Haemoglobin decreased [Not Recovered/Not Resolved]
  - Alopecia [Unknown]
  - Sepsis [Unknown]
  - Skin discolouration [Unknown]
  - Skin exfoliation [Unknown]
  - Pancytopenia [Not Recovered/Not Resolved]
  - Nausea [Unknown]
  - Hypertension [Unknown]

NARRATIVE: CASE EVENT DATE: 20170828
